FAERS Safety Report 17834037 (Version 4)
Quarter: 2020Q2

REPORT INFORMATION
  Report Type: Report from Study
  Country: None (occurrence: US)
  Receive Date: 20200528
  Receipt Date: 20200619
  Transmission Date: 20200714
  Serious: No
  Sender: FDA-Public Use
  Company Number: US-BIOVITRUM-2020US2739

PATIENT
  Age: 56 Year
  Sex: Female

DRUGS (9)
  1. KINERET [Suspect]
     Active Substance: ANAKINRA
     Indication: MONOCLONAL GAMMOPATHY
     Route: 058
     Dates: start: 20200512
  2. KINERET [Suspect]
     Active Substance: ANAKINRA
     Indication: RASH
  3. VITAMIN D [Concomitant]
     Active Substance: VITAMIN D NOS
  4. DUPIXENT [Concomitant]
     Active Substance: DUPILUMAB
  5. DOXEPIN [Concomitant]
     Active Substance: DOXEPIN
  6. KINERET [Suspect]
     Active Substance: ANAKINRA
     Indication: RASH
  7. CALCIUM [Concomitant]
     Active Substance: CALCIUM
  8. CYCLOSPORINE. [Concomitant]
     Active Substance: CYCLOSPORINE
  9. HYDROCORTISONE. [Concomitant]
     Active Substance: HYDROCORTISONE

REACTIONS (8)
  - Injection site pruritus [Unknown]
  - Injection site pain [Unknown]
  - Arthralgia [Unknown]
  - Injection site discolouration [Recovering/Resolving]
  - Injection site rash [Recovering/Resolving]
  - Off label use [Not Recovered/Not Resolved]
  - Burning sensation [Unknown]
  - Rash pruritic [Unknown]

NARRATIVE: CASE EVENT DATE: 20200512
